FAERS Safety Report 4510057-5 (Version None)
Quarter: 2004Q4

REPORT INFORMATION
  Report Type: 
  Country: None (occurrence: None)
  Receive Date: 20041124
  Receipt Date: 20040908
  Transmission Date: 20050328
  Serious: Yes (Death)
  Sender: FDA-Public Use
  Company Number: PHEH2004US09656

PATIENT
  Age: 79 Year
  Sex: Female
  Weight: 75 kg

DRUGS (4)
  1. ZOMETA [Suspect]
     Indication: MULTIPLE MYELOMA
     Dosage: 4 MG  MONTHLY
     Route: 042
     Dates: start: 20011128, end: 20030130
  2. ZOMETA [Suspect]
     Dosage: 2 MG ONE TIME ONLY DOSE
     Dates: start: 20030227, end: 20030227
  3. PROCRIT [Concomitant]
     Indication: ANAEMIA
     Dosage: 40000 UNITS WEEKLY
     Dates: start: 20011120, end: 20040113
  4. DEXAMETHASONE [Concomitant]
     Indication: CELL DEATH
     Dosage: 40-100 MG PERIODICALLY
     Dates: start: 20000707, end: 20021030

REACTIONS (4)
  - BLOOD CREATININE INCREASED [None]
  - BLOOD UREA INCREASED [None]
  - DEATH [None]
  - DEHYDRATION [None]
